FAERS Safety Report 7387550-3 (Version None)
Quarter: 2011Q1

REPORT INFORMATION
  Report Type: 
  Country: None (occurrence: None)
  Receive Date: 20110331
  Receipt Date: 20110328
  Transmission Date: 20110831
  Serious: Yes (Hospitalization)
  Sender: FDA-Public Use
  Company Number: JP-PFIZER INC-2010130125

PATIENT
  Age: 81 Year
  Sex: Female
  Weight: 40 kg

DRUGS (7)
  1. PENTASA [Suspect]
     Indication: ENTEROCOLITIS
     Dosage: 1500 MG/DAY
     Route: 048
     Dates: start: 20090716, end: 20090808
  2. CIMETIDINE [Concomitant]
     Indication: PROPHYLAXIS OF NAUSEA AND VOMITING
     Dosage: UNK
     Route: 048
     Dates: end: 20090715
  3. RISEDRONATE SODIUM [Concomitant]
     Indication: RHEUMATOID ARTHRITIS
     Dosage: UNK
     Route: 048
     Dates: end: 20090715
  4. BIOFERMIN R [Concomitant]
     Indication: ENTEROCOLITIS
     Dosage: UNK
     Route: 048
     Dates: end: 20090715
  5. AZULENE SODIUM SULFONATE [Concomitant]
     Dosage: UNK
     Route: 048
     Dates: start: 20090715
  6. AZULFIDINE [Suspect]
     Indication: RHEUMATOID ARTHRITIS
     Dosage: 1000 MG/DAY
     Route: 048
     Dates: start: 20090521, end: 20090713
  7. MILNACIPRAN HYDROCHLORIDE [Concomitant]
     Dosage: UNK
     Route: 048
     Dates: start: 20090715

REACTIONS (1)
  - ENTEROCOLITIS [None]
